FAERS Safety Report 9265615 (Version 1)
Quarter: 2013Q2

REPORT INFORMATION
  Report Type: Spontaneous
  Country: DE (occurrence: DE)
  Receive Date: 20130501
  Receipt Date: 20130501
  Transmission Date: 20140414
  Serious: Yes (Hospitalization)
  Sender: FDA-Public Use
  Company Number: DE-MYLANLABS-2013S1008470

PATIENT
  Age: 73 Year
  Sex: Male
  Weight: 65 kg

DRUGS (2)
  1. AMIODARONE [Suspect]
     Indication: CARDIAC FAILURE
     Route: 048
     Dates: start: 201205, end: 201208
  2. MARCUMAR [Concomitant]
     Indication: ATRIAL FIBRILLATION
     Route: 048

REACTIONS (3)
  - Cholestasis [Recovering/Resolving]
  - Hyperthyroidism [Recovering/Resolving]
  - Jaundice [Recovering/Resolving]
